FAERS Safety Report 7083323-X (Version None)
Quarter: 2010Q4

REPORT INFORMATION
  Report Type: 
  Country: None (occurrence: None)
  Receive Date: 20101104
  Receipt Date: 20101026
  Transmission Date: 20110411
  Serious: Yes (Hospitalization)
  Sender: FDA-Public Use
  Company Number: PHHY2010US72280

PATIENT
  Sex: Male

DRUGS (1)
  1. MYFORTIC [Suspect]
     Dosage: 720 MG, BID
     Route: 048
     Dates: start: 20100819, end: 20100920

REACTIONS (1)
  - URETERIC OBSTRUCTION [None]
